FAERS Safety Report 6693067-1 (Version None)
Quarter: 2010Q2

REPORT INFORMATION
  Report Type: 
  Country: None (occurrence: None)
  Receive Date: 20100420
  Receipt Date: 20100407
  Transmission Date: 20101027
  Serious: Yes (Death, Hospitalization)
  Sender: FDA-Public Use
  Company Number: 2009AC000205

PATIENT
  Age: 73 Year
  Sex: Female

DRUGS (26)
  1. DIGOXIN [Suspect]
     Indication: SUPRAVENTRICULAR EXTRASYSTOLES
     Dosage: 0.125 MG; PO
     Route: 048
     Dates: start: 20060103, end: 20070806
  2. TOPROL-XL [Concomitant]
  3. ALTACE [Concomitant]
  4. ENALAPRIL MALEATE [Concomitant]
  5. NABUMETONE [Concomitant]
  6. LIPITOR [Concomitant]
  7. ELAVIL [Concomitant]
  8. PREVACID [Concomitant]
  9. AMITRIPTYLINE [Concomitant]
  10. DICLOFENAC SODIUM [Concomitant]
  11. SPIRONOLACTONE [Concomitant]
  12. PROTONIX [Concomitant]
  13. LASIX [Concomitant]
  14. FLAGYL [Concomitant]
  15. METOPROLOL TARTRATE [Concomitant]
  16. ADVAIR DISKUS 100/50 [Concomitant]
  17. ALBUTEROL [Concomitant]
  18. ATROVENT [Concomitant]
  19. AMIODARONE [Concomitant]
  20. ASPIRIN [Concomitant]
  21. RIFAXIMIN [Concomitant]
  22. FLORASTOR [Concomitant]
  23. XENADERM [Concomitant]
  24. VANCOMYCIN [Concomitant]
  25. METRONIDAZOLE [Concomitant]
  26. HALDOL [Concomitant]

REACTIONS (37)
  - AORTIC CALCIFICATION [None]
  - AORTIC DILATATION [None]
  - ASTHENIA [None]
  - BLOOD THYROID STIMULATING HORMONE INCREASED [None]
  - BRAIN OEDEMA [None]
  - BREAST CALCIFICATIONS [None]
  - CARDIAC FAILURE CONGESTIVE [None]
  - CARDIOPULMONARY FAILURE [None]
  - CAROTID ARTERY STENOSIS [None]
  - CEREBROVASCULAR ACCIDENT [None]
  - CHRONIC OBSTRUCTIVE PULMONARY DISEASE [None]
  - CLOSTRIDIUM DIFFICILE COLITIS [None]
  - CONDITION AGGRAVATED [None]
  - CULTURE URINE POSITIVE [None]
  - DECUBITUS ULCER [None]
  - DIARRHOEA [None]
  - DYSPNOEA [None]
  - ECONOMIC PROBLEM [None]
  - ELECTROCARDIOGRAM T WAVE ABNORMAL [None]
  - HAEMATURIA [None]
  - HAEMOGLOBIN DECREASED [None]
  - HYPOTENSION [None]
  - MALIGNANT MELANOMA [None]
  - MENTAL STATUS CHANGES [None]
  - MULTIPLE INJURIES [None]
  - MUSCULOSKELETAL CHEST PAIN [None]
  - MYOCARDIAL INFARCTION [None]
  - NAUSEA [None]
  - PLEURAL EFFUSION [None]
  - PSEUDOMONAS INFECTION [None]
  - RENAL IMPAIRMENT [None]
  - RESPIRATORY FAILURE [None]
  - SEPTIC SHOCK [None]
  - SURGERY [None]
  - UNEVALUABLE EVENT [None]
  - VASCULAR CALCIFICATION [None]
  - WHITE BLOOD CELL COUNT INCREASED [None]
